FAERS Safety Report 13418578 (Version 2)
Quarter: 2018Q2

REPORT INFORMATION
  Report Type: Spontaneous
  Country: US (occurrence: US)
  Receive Date: 20170406
  Receipt Date: 20180409
  Transmission Date: 20180711
  Serious: Yes (Other)
  Sender: FDA-Public Use
  Company Number: US-PFIZER INC-2017150962

PATIENT
  Sex: Female

DRUGS (1)
  1. ZOLOFT [Suspect]
     Active Substance: SERTRALINE HYDROCHLORIDE
     Dosage: UNK

REACTIONS (7)
  - Dyspnoea [Unknown]
  - Hypotonia [Unknown]
  - Uterine haemorrhage [Unknown]
  - Strabismus [Unknown]
  - Uterine rupture [Unknown]
  - Torticollis [Unknown]
  - Motor dysfunction [Recovering/Resolving]
